FAERS Safety Report 5626333-9 (Version None)
Quarter: 2008Q1

REPORT INFORMATION
  Report Type: 
  Country: None (occurrence: None)
  Receive Date: 20080214
  Receipt Date: 20080205
  Transmission Date: 20080703
  Serious: Yes (Death, Other)
  Sender: FDA-Public Use
  Company Number: US-PURDUE-USA_2008_0031335

PATIENT
  Sex: Male

DRUGS (1)
  1. MS CONTIN [Suspect]
     Indication: DRUG USE FOR UNKNOWN INDICATION
     Dosage: 60 MG, UNK

REACTIONS (2)
  - DEATH [None]
  - OVERDOSE [None]
